FAERS Safety Report 4802330-8 (Version None)
Quarter: 2005Q4

REPORT INFORMATION
  Report Type: 
  Country: None (occurrence: None)
  Receive Date: 20051012
  Receipt Date: 20051005
  Transmission Date: 20060501
  Serious: Yes (Other)
  Sender: FDA-Public Use
  Company Number: GBWYE032805OCT05

PATIENT
  Age: 39 Year
  Sex: Female

DRUGS (3)
  1. EFFEXOR [Suspect]
  2. CLOZARIL [Suspect]
     Indication: SCHIZOPHRENIA
     Dosage: ORAL
     Route: 048
     Dates: start: 20050804
  3. MIRTAZAPINE [Concomitant]

REACTIONS (8)
  - CONDITION AGGRAVATED [None]
  - CONFUSIONAL STATE [None]
  - DISORIENTATION [None]
  - DRUG INTERACTION [None]
  - DRUG LEVEL INCREASED [None]
  - EPILEPSY [None]
  - FALL [None]
  - SLEEP DISORDER [None]
